FAERS Safety Report 11984243 (Version 1)
Quarter: 2016Q1

REPORT INFORMATION
  Report Type: Spontaneous
  Country: US (occurrence: US)
  Receive Date: 20160201
  Receipt Date: 20160201
  Transmission Date: 20160526
  Serious: Yes (Other)
  Sender: FDA-Public Use
  Company Number: US-SA-2016SA014654

PATIENT
  Sex: Female

DRUGS (1)
  1. LANTUS [Suspect]
     Active Substance: INSULIN GLARGINE
     Indication: DIABETES MELLITUS
     Route: 065
     Dates: end: 2015

REACTIONS (4)
  - Orthosis user [Unknown]
  - Blood disorder [Unknown]
  - Unevaluable event [Unknown]
  - Abasia [Unknown]

NARRATIVE: CASE EVENT DATE: 2013
